FAERS Safety Report 4697771-6 (Version None)
Quarter: 2005Q2

REPORT INFORMATION
  Report Type: 
  Country: None (occurrence: None)
  Receive Date: 20050621
  Receipt Date: 20050616
  Transmission Date: 20051028
  Serious: Yes (Life-Threatening, Hospitalization)
  Sender: FDA-Public Use
  Company Number: 200420921BWH

PATIENT
  Age: 34 Year
  Sex: Female

DRUGS (1)
  1. AVELOX [Suspect]
     Indication: PNEUMONIA
     Dosage: 400 MG, QD, ORAL
     Route: 048
     Dates: start: 20041018, end: 20041019

REACTIONS (4)
  - BLOOD URINE PRESENT [None]
  - HAEMOPTYSIS [None]
  - SKIN REACTION [None]
  - THROMBOCYTOPENIA [None]
